FAERS Safety Report 14391259 (Version 6)
Quarter: 2018Q1

REPORT INFORMATION
  Report Type: Spontaneous
  Country: RU (occurrence: RU)
  Receive Date: 20180116
  Receipt Date: 20180306
  Transmission Date: 20180509
  Serious: Yes (Death)
  Sender: FDA-Public Use
  Company Number: RU-ABBVIE-18S-251-2220102-00

PATIENT
  Age: 3 Year
  Sex: Male
  Weight: 14.8 kg

DRUGS (8)
  1. FENTANYL. [Suspect]
     Active Substance: FENTANYL
     Indication: GENERAL ANAESTHESIA
     Dosage: STRENGTH 50 MCG/ ML 1 ML
     Route: 042
     Dates: start: 20171215
  2. ULTANE [Suspect]
     Active Substance: SEVOFLURANE
     Indication: GENERAL ANAESTHESIA
     Dosage: 6 VOL%
     Route: 055
     Dates: start: 20171215
  3. PROMEDOL [Concomitant]
     Active Substance: TRIMEPERIDINE
     Indication: PREMEDICATION
     Dates: start: 20171215
  4. SODIUM CHLORIDE. [Concomitant]
     Active Substance: SODIUM CHLORIDE
     Indication: INFUSION
     Route: 041
     Dates: start: 20171215
  5. RINGERS SOLUTION [Concomitant]
     Active Substance: CALCIUM CHLORIDE\POTASSIUM CHLORIDE\SODIUM CHLORIDE
     Indication: PRODUCT USED FOR UNKNOWN INDICATION
     Dates: start: 20171215
  6. ULTANE [Suspect]
     Active Substance: SEVOFLURANE
     Dosage: 2.5 VOL%
     Route: 055
     Dates: start: 20171215, end: 20171215
  7. RELANIUM [Concomitant]
     Active Substance: DIAZEPAM
     Indication: PREMEDICATION
     Dates: start: 20171215
  8. DIMEDROL [Concomitant]
     Active Substance: DIPHENHYDRAMINE
     Indication: PREMEDICATION
     Dates: start: 20171215

REACTIONS (3)
  - Encephalopathy [Fatal]
  - Heart rate decreased [Fatal]
  - Respiratory arrest [Fatal]

NARRATIVE: CASE EVENT DATE: 20171215
